FAERS Safety Report 11990396 (Version 2)
Quarter: 2016Q1

REPORT INFORMATION
  Report Type: Report from Study
  Country: US (occurrence: US)
  Receive Date: 20160202
  Receipt Date: 20160212
  Transmission Date: 20160526
  Serious: Yes (Hospitalization)
  Sender: FDA-Public Use
  Company Number: US-ACTELION-A-NJ2016-130660

PATIENT
  Age: 77 Year
  Sex: Female

DRUGS (2)
  1. ADCIRCA [Concomitant]
     Active Substance: TADALAFIL
  2. VELETRI [Suspect]
     Active Substance: EPOPROSTENOL
     Indication: PULMONARY HYPERTENSION
     Dosage: 40.2 NG/KG, PER MIN
     Route: 042
     Dates: start: 20120316, end: 201601

REACTIONS (4)
  - Dyspnoea [Unknown]
  - Delirium [Unknown]
  - Fluid retention [Unknown]
  - Pneumonia [Unknown]
